FAERS Safety Report 19393512 (Version 1)
Quarter: 2021Q2

REPORT INFORMATION
  Report Type: Spontaneous
  Country: CA (occurrence: CA)
  Receive Date: 20210609
  Receipt Date: 20210609
  Transmission Date: 20210717
  Serious: Yes (Other)
  Sender: FDA-Public Use
  Company Number: CA-ORION CORPORATION ORION PHARMA-21_00014169

PATIENT
  Age: 47 Year
  Sex: Female
  Weight: 81 kg

DRUGS (1)
  1. METHOTREXATE (TRADE NAME UNKNOWN) [Suspect]
     Active Substance: METHOTREXATE
     Indication: PRODUCT USED FOR UNKNOWN INDICATION
     Route: 065
     Dates: start: 201810, end: 201901

REACTIONS (6)
  - Skin ulcer [Unknown]
  - Arthropathy [Unknown]
  - Sensory loss [Unknown]
  - Musculoskeletal stiffness [Not Recovered/Not Resolved]
  - Skin lesion [Not Recovered/Not Resolved]
  - Neuropathy peripheral [Unknown]
